FAERS Safety Report 9651823 (Version 2)
Quarter: 2013Q4

REPORT INFORMATION
  Report Type: Spontaneous
  Country: US (occurrence: US)
  Receive Date: 20131029
  Receipt Date: 20131230
  Transmission Date: 20140711
  Serious: Yes (Hospitalization, Other)
  Sender: FDA-Public Use
  Company Number: US-B.I. PHARMACEUTICALS,INC./RIDGEFIELD-2013-BI-33730BP

PATIENT
  Age: 80 Year
  Sex: Female

DRUGS (8)
  1. SPIRIVA [Suspect]
     Indication: CHRONIC OBSTRUCTIVE PULMONARY DISEASE
     Dosage: 18 MCG
     Route: 055
     Dates: start: 2009
  2. CRESTOR [Concomitant]
     Indication: BLOOD CHOLESTEROL INCREASED
     Route: 042
  3. NIFEDIPINE [Concomitant]
     Indication: PULMONARY HYPERTENSION
     Route: 048
  4. FUROSEMIDE [Concomitant]
     Indication: LYMPHOEDEMA
     Dosage: 10 MG
     Route: 048
  5. PERFOROMIST [Concomitant]
     Indication: CHRONIC OBSTRUCTIVE PULMONARY DISEASE
     Route: 055
  6. GABAPENTIN [Concomitant]
     Indication: NEUROPATHY PERIPHERAL
     Dosage: 800 MG
     Route: 048
  7. PREDNISONE [Concomitant]
     Indication: LUPUS-LIKE SYNDROME
     Dosage: 5 MG
     Route: 048
  8. LEVOTHYROXINE [Concomitant]
     Indication: HYPOTHYROIDISM
     Dosage: 125 MCG
     Route: 048

REACTIONS (4)
  - Lung neoplasm malignant [Not Recovered/Not Resolved]
  - Bladder cancer [Recovered/Resolved]
  - Renal cancer [Not Recovered/Not Resolved]
  - Pneumothorax [Recovered/Resolved]
